FAERS Safety Report 8862047 (Version 1)
Quarter: 2012Q4

REPORT INFORMATION
  Report Type: 
  Country: DK (occurrence: DK)
  Receive Date: 20121026
  Receipt Date: 20121026
  Transmission Date: 20130627
  Serious: Yes (Congenital Anomaly)
  Sender: FDA-Public Use
  Company Number: DK-SHIRE-ALL1-2012-05116

PATIENT
  Age: 0 Year

DRUGS (1)
  1. MESALAZINE [Suspect]
     Indication: COLITIS ULCERATIVE
     Dosage: 1200 mg, One dose
     Route: 064

REACTIONS (2)
  - Meningomyelocele [Not Recovered/Not Resolved]
  - Foetal exposure during pregnancy [Not Recovered/Not Resolved]
